FAERS Safety Report 21306629 (Version 1)
Quarter: 2022Q3

REPORT INFORMATION
  Report Type: Spontaneous
  Country: JP (occurrence: JP)
  Receive Date: 20220908
  Receipt Date: 20220908
  Transmission Date: 20221027
  Serious: Yes (Death)
  Sender: FDA-Public Use
  Company Number: JP-009507513-1710JPN010264

PATIENT
  Age: 52 Year
  Sex: Male

DRUGS (4)
  1. REFLEX [Suspect]
     Active Substance: MIRTAZAPINE
     Indication: Product used for unknown indication
     Dosage: UNK
     Route: 048
  2. FLUNITRAZEPAM [Concomitant]
     Active Substance: FLUNITRAZEPAM
     Indication: Product used for unknown indication
     Dosage: UNK
     Route: 048
  3. SULPIRIDE [Concomitant]
     Active Substance: SULPIRIDE
     Indication: Product used for unknown indication
     Dosage: UNK
     Route: 048
  4. BROTIZOLAM [Concomitant]
     Active Substance: BROTIZOLAM
     Indication: Product used for unknown indication
     Dosage: UNK
     Route: 048

REACTIONS (1)
  - Intentional overdose [Fatal]
